FAERS Safety Report 8165189 (Version 4)
Quarter: 2013Q4

REPORT INFORMATION
  Report Type: Spontaneous
  Country: AU (occurrence: AU)
  Receive Date: 20111003
  Receipt Date: 20131128
  Transmission Date: 20140711
  Serious: Yes (Hospitalization, Other)
  Sender: FDA-Public Use
  Company Number: AU-JNJFOC-20110909798

PATIENT
  Sex: Female

DRUGS (4)
  1. RISPERDAL [Suspect]
     Indication: SCHIZOPHRENIA
     Route: 065
  2. RISPERDAL [Suspect]
     Indication: SCHIZOPHRENIA
     Route: 065
  3. UNKNOWN MEDICATION [Suspect]
     Indication: PRODUCT USED FOR UNKNOWN INDICATION
     Route: 065
  4. HALDOL [Concomitant]
     Route: 065

REACTIONS (8)
  - Product contamination [Unknown]
  - Dizziness [Unknown]
  - Feeling abnormal [Unknown]
  - Grief reaction [Unknown]
  - Euphoric mood [Unknown]
  - Product tampering [Unknown]
  - Wrong technique in drug usage process [Unknown]
  - Product colour issue [Unknown]
